FAERS Safety Report 15855887 (Version 2)
Quarter: 2019Q1

REPORT INFORMATION
  Report Type: Report from Study
  Country: IT (occurrence: IT)
  Receive Date: 20190122
  Receipt Date: 20190125
  Transmission Date: 20190417
  Serious: Yes (Hospitalization)
  Sender: FDA-Public Use
  Company Number: IT-TEVA-2019-IT-1002215

PATIENT
  Age: 95 Year
  Sex: Female

DRUGS (2)
  1. CARDIOASPIRIN 100 MG COMPRESSE GASTRORESISTENTI [Suspect]
     Active Substance: ASPIRIN
     Indication: PROPHYLAXIS
     Dosage: 100 MILLIGRAM DAILY;
     Route: 048
     Dates: start: 20141119, end: 20181120
  2. ATENOLOL. [Suspect]
     Active Substance: ATENOLOL
     Indication: HYPERTENSION
     Dosage: 50 MILLIGRAM DAILY;
     Route: 048
     Dates: start: 20141119, end: 20181120

REACTIONS (7)
  - Movement disorder [Recovering/Resolving]
  - Sopor [Recovering/Resolving]
  - Bradyphrenia [Recovering/Resolving]
  - Anaemia [Recovering/Resolving]
  - Melaena [Recovering/Resolving]
  - Pallor [Recovering/Resolving]
  - Hypotension [Recovering/Resolving]

NARRATIVE: CASE EVENT DATE: 20181119
